FAERS Safety Report 14169985 (Version 1)
Quarter: 2017Q4

REPORT INFORMATION
  Report Type: Spontaneous
  Country: US (occurrence: US)
  Receive Date: 20171108
  Receipt Date: 20171108
  Transmission Date: 20180321
  Serious: Yes (Other)
  Sender: FDA-Public Use
  Company Number: US-NAPPMUNDI-USA-2017-0141468

PATIENT
  Sex: Male
  Weight: 117.91 kg

DRUGS (8)
  1. OXYCODONE HYDROCHLORIDE (SIMILAR TO NDA 22-272) [Suspect]
     Active Substance: OXYCODONE HYDROCHLORIDE
     Indication: PAIN
     Dosage: UNK
     Route: 048
     Dates: start: 2004, end: 201612
  2. VITAMIN B2                         /00154901/ [Concomitant]
     Indication: PAIN
  3. MARIJUANA [Suspect]
     Active Substance: CANNABIS SATIVA SUBSP. INDICA TOP
     Indication: SUBSTANCE ABUSE
     Dosage: UNK
     Route: 065
  4. INDOMETHACIN                       /00003801/ [Suspect]
     Active Substance: INDOMETHACIN
     Indication: TRIGEMINAL NERVE DISORDER
     Dosage: UNK
     Route: 065
  5. VITAMIN B2                         /00154901/ [Concomitant]
     Indication: GASTROINTESTINAL DISORDER
  6. VITAMIN B2                         /00154901/ [Concomitant]
     Indication: GLAUCOMA
  7. OXYCODONE HYDROCHLORIDE (SIMILAR TO NDA 22-272) [Suspect]
     Active Substance: OXYCODONE HYDROCHLORIDE
     Dosage: 5 MG, UNK
     Route: 048
  8. VITAMIN B2                         /00154901/ [Concomitant]
     Indication: DYSPEPSIA
     Dosage: UNK
     Route: 065
     Dates: start: 2013, end: 201612

REACTIONS (10)
  - Drug abuse [Unknown]
  - Haematemesis [Unknown]
  - Hypoaesthesia [Unknown]
  - Pain [Unknown]
  - Abdominal pain [Unknown]
  - Intentional product misuse [Recovered/Resolved]
  - Asthenia [Unknown]
  - Cerebrovascular accident [Unknown]
  - Facial paralysis [Unknown]
  - Gastrointestinal haemorrhage [Unknown]

NARRATIVE: CASE EVENT DATE: 2013
